FAERS Safety Report 5781446-6 (Version None)
Quarter: 2008Q2

REPORT INFORMATION
  Report Type: 
  Country: None (occurrence: None)
  Receive Date: 20080623
  Receipt Date: 20070612
  Transmission Date: 20081010
  Serious: No
  Sender: FDA-Public Use
  Company Number: US-ASTRAZENECA-2007UW14237

PATIENT
  Age: 80 Year
  Sex: Male
  Weight: 72.6 kg

DRUGS (8)
  1. ENTOCORT EC [Suspect]
     Indication: COLITIS
     Route: 048
     Dates: start: 20040601
  2. ENTOCORT EC [Suspect]
     Indication: DIVERTICULUM
     Route: 048
     Dates: start: 20040601
  3. ZOCOR [Concomitant]
  4. HYZAAR [Concomitant]
  5. PLENDIL [Concomitant]
     Route: 048
  6. PROSCAR [Concomitant]
  7. TRIMETHOPIN [Concomitant]
  8. PRILOSEC [Concomitant]
     Route: 048

REACTIONS (1)
  - HYPERTHYROIDISM [None]
